FAERS Safety Report 20616412 (Version 1)
Quarter: 2022Q1

REPORT INFORMATION
  Report Type: Spontaneous
  Country: US (occurrence: None)
  Receive Date: 20220321
  Receipt Date: 20220321
  Transmission Date: 20220423
  Serious: Yes (Hospitalization)
  Sender: FDA-Public Use
  Company Number: None

PATIENT
  Age: 50 Year
  Sex: Male
  Weight: 103 kg

DRUGS (1)
  1. PRAZOSIN HYDROCHLORIDE [Suspect]
     Active Substance: PRAZOSIN HYDROCHLORIDE
     Indication: Nightmare
     Dosage: 1 MG AT BEDTIME PO
     Route: 048
     Dates: start: 20211209, end: 20211212

REACTIONS (2)
  - Seizure [None]
  - Suicidal ideation [None]

NARRATIVE: CASE EVENT DATE: 20211214
